FAERS Safety Report 4764945-5 (Version None)
Quarter: 2005Q3

REPORT INFORMATION
  Report Type: 
  Country: None (occurrence: None)
  Receive Date: 20050909
  Receipt Date: 20050831
  Transmission Date: 20060218
  Serious: Yes (Hospitalization)
  Sender: FDA-Public Use
  Company Number: SE-NOVOPROD-246682

PATIENT
  Age: 14 Year
  Weight: 35 kg

DRUGS (1)
  1. NORDITROPIN [Suspect]
     Indication: GROWTH RETARDATION
     Dosage: 2.5 MG, QD
     Dates: start: 20050531, end: 20050815

REACTIONS (4)
  - AGGRESSION [None]
  - ERYSIPELAS [None]
  - RENAL FAILURE [None]
  - SEPSIS [None]
